FAERS Safety Report 11455978 (Version 2)
Quarter: 2015Q3

REPORT INFORMATION
  Report Type: Spontaneous
  Country: JP (occurrence: JP)
  Receive Date: 20150903
  Receipt Date: 20150915
  Transmission Date: 20151125
  Serious: Yes (Other)
  Sender: FDA-Public Use
  Company Number: JP-JNJFOC-20150902532

PATIENT
  Age: 52 Year
  Sex: Female

DRUGS (11)
  1. MEILAX [Concomitant]
     Active Substance: ETHYL LOFLAZEPATE
     Indication: PSYCHIATRIC SYMPTOM
     Route: 048
  2. OXAROL [Concomitant]
     Active Substance: MAXACALCITOL
     Indication: PSORIASIS
     Dosage: QUANTITY SUFFICIENT (Q.S.)
     Route: 048
  3. BARNETIL [Concomitant]
     Active Substance: SULTOPRIDE HYDROCHLORIDE
     Indication: PSYCHIATRIC SYMPTOM
     Route: 048
  4. LIMAS [Concomitant]
     Active Substance: LITHIUM CARBONATE
     Indication: PSYCHIATRIC SYMPTOM
     Route: 048
  5. STELARA [Suspect]
     Active Substance: USTEKINUMAB
     Indication: PSORIASIS
     Route: 058
     Dates: start: 20150731
  6. STELARA [Suspect]
     Active Substance: USTEKINUMAB
     Indication: PSORIASIS
     Route: 058
     Dates: start: 20131225, end: 20150724
  7. TEGRETOL [Concomitant]
     Active Substance: CARBAMAZEPINE
     Indication: PSYCHIATRIC SYMPTOM
     Route: 048
  8. PROPETO [Concomitant]
     Indication: PSORIASIS
     Dosage: QUANTITY SUFFICIENT (Q.S.)
     Route: 065
  9. AKINETON [Concomitant]
     Active Substance: BIPERIDEN HYDROCHLORIDE
     Indication: PARKINSON^S DISEASE
     Route: 048
  10. LIDOMEX [Concomitant]
     Active Substance: PREDNISOLONE VALERATE ACETATE
     Indication: PSORIASIS
     Dosage: QUANTITY SUFFICIENT (Q.S)
     Route: 065
  11. ANTEBATE [Concomitant]
     Active Substance: BETAMETHASONE DIPROPIONATE
     Indication: PSORIASIS
     Dosage: QUANTITY SUFFICIENT (Q.S.)
     Route: 065

REACTIONS (1)
  - Cellulitis [Recovered/Resolved]

NARRATIVE: CASE EVENT DATE: 20150706
